FAERS Safety Report 5219040-8 (Version None)
Quarter: 2007Q1

REPORT INFORMATION
  Report Type: 
  Country: None (occurrence: None)
  Receive Date: 20070125
  Receipt Date: 20070116
  Transmission Date: 20070707
  Serious: Yes (Other)
  Sender: FDA-Public Use
  Company Number: US-ROCHE-478520

PATIENT
  Age: 50 Year
  Sex: Female

DRUGS (4)
  1. BONIVA [Suspect]
     Indication: OSTEOPENIA
     Route: 048
     Dates: start: 20070112
  2. ULTRAM [Concomitant]
  3. FLEXERIL [Concomitant]
  4. AMBIEN [Concomitant]

REACTIONS (12)
  - COGNITIVE DISORDER [None]
  - CONFUSIONAL STATE [None]
  - DEPRESSION [None]
  - DISORIENTATION [None]
  - FALL [None]
  - FEELING ABNORMAL [None]
  - INSOMNIA [None]
  - MUSCLE TWITCHING [None]
  - PARAESTHESIA [None]
  - STOMACH DISCOMFORT [None]
  - TREMOR [None]
  - VISION BLURRED [None]
